FAERS Safety Report 10800605 (Version 1)
Quarter: 2015Q1

REPORT INFORMATION
  Report Type: Spontaneous
  Country: PL (occurrence: PL)
  Receive Date: 20150216
  Receipt Date: 20150216
  Transmission Date: 20150721
  Serious: Yes (Death)
  Sender: FDA-Public Use
  Company Number: PL-MYLANLABS-2015M1004689

PATIENT

DRUGS (2)
  1. IMATINIB [Concomitant]
     Active Substance: IMATINIB
     Route: 065
     Dates: start: 201004
  2. SUNITINIB [Suspect]
     Active Substance: SUNITINIB
     Indication: CLEAR CELL RENAL CELL CARCINOMA
     Dosage: IN 6-WEEK CYCLES (4-WEEKS ON/2-WEEKS OFF)
     Route: 048
     Dates: start: 200512

REACTIONS (3)
  - Chronic myeloid leukaemia [Fatal]
  - Multi-organ failure [Fatal]
  - Fatigue [Unknown]

NARRATIVE: CASE EVENT DATE: 201002
